FAERS Safety Report 14296965 (Version 2)
Quarter: 2018Q1

REPORT INFORMATION
  Report Type: Spontaneous
  Country: CA (occurrence: CA)
  Receive Date: 20171218
  Receipt Date: 20180129
  Transmission Date: 20180509
  Serious: Yes (Death, Other)
  Sender: FDA-Public Use
  Company Number: CA-PFIZER INC-2017534274

PATIENT
  Age: 75 Year
  Sex: Male

DRUGS (1)
  1. CORVERT [Suspect]
     Active Substance: IBUTILIDE FUMARATE
     Dosage: 1 MG, UNK

REACTIONS (1)
  - Torsade de pointes [Fatal]
